FAERS Safety Report 10504687 (Version 3)
Quarter: 2015Q2

REPORT INFORMATION
  Report Type: Spontaneous
  Country: US (occurrence: US)
  Receive Date: 20141008
  Receipt Date: 20150505
  Transmission Date: 20150821
  Serious: Yes (Other)
  Sender: FDA-Public Use
  Company Number: US-BAYER-2014-147993

PATIENT
  Age: 28 Year
  Sex: Female
  Weight: 42 kg

DRUGS (3)
  1. FLAGYL [Concomitant]
     Active Substance: METRONIDAZOLE\METRONIDAZOLE HYDROCHLORIDE
     Indication: BACTERIAL VAGINOSIS
  2. MACRODANTIN [Concomitant]
     Active Substance: NITROFURANTOIN
     Indication: URINARY TRACT INFECTION
  3. MIRENA [Suspect]
     Active Substance: LEVONORGESTREL
     Indication: CONTRACEPTION
     Dosage: 20 MCG/24HR, CONT
     Route: 015
     Dates: start: 20120505, end: 20130218

REACTIONS (10)
  - Device breakage [None]
  - Injury [None]
  - Pelvic inflammatory disease [None]
  - Device issue [None]
  - Device difficult to use [None]
  - Uterine perforation [None]
  - Pelvic fluid collection [None]
  - Device dislocation [None]
  - Pelvic pain [None]
  - Complication of device removal [None]

NARRATIVE: CASE EVENT DATE: 201205
